FAERS Safety Report 10240940 (Version 3)
Quarter: 2014Q3

REPORT INFORMATION
  Report Type: Spontaneous
  Country: CA (occurrence: CA)
  Receive Date: 20140617
  Receipt Date: 20140708
  Transmission Date: 20150326
  Serious: Yes (Death, Hospitalization, Other)
  Sender: FDA-Public Use
  Company Number: CA-JNJFOC-20140610696

PATIENT
  Age: 44 Year
  Sex: Male
  Weight: 107.05 kg

DRUGS (2)
  1. REMICADE [Suspect]
     Active Substance: INFLIXIMAB
     Indication: ENTEROVESICAL FISTULA
     Dosage: THE PATIENT WAS ON INFLIXIMAB FOR 9 YEARS
     Route: 042
     Dates: start: 20050609, end: 20140407
  2. REMICADE [Suspect]
     Active Substance: INFLIXIMAB
     Indication: CROHN^S DISEASE
     Dosage: THE PATIENT WAS ON INFLIXIMAB FOR 9 YEARS
     Route: 042
     Dates: start: 20050609, end: 20140407

REACTIONS (6)
  - Death [Fatal]
  - Peripheral swelling [Unknown]
  - Aspartate aminotransferase increased [Unknown]
  - Alanine aminotransferase increased [Unknown]
  - Hepatic steatosis [Unknown]
  - Portal hypertension [Unknown]

NARRATIVE: CASE EVENT DATE: 201405
